FAERS Safety Report 6306867-4 (Version None)
Quarter: 2009Q3

REPORT INFORMATION
  Report Type: 
  Country: None (occurrence: None)
  Receive Date: 20090810
  Receipt Date: 20090805
  Transmission Date: 20100115
  Serious: Yes (Life-Threatening)
  Sender: FDA-Public Use
  Company Number: PL-EBEWE-1086CARBO09

PATIENT
  Age: 56 Year
  Sex: Female

DRUGS (3)
  1. CARBOPLATIN [Suspect]
     Indication: OVARIAN CANCER
     Dosage: 800MG/DAY, IV
     Route: 042
     Dates: start: 20090723
  2. CARBOPLATIN [Suspect]
  3. CARBOPLATIN [Suspect]

REACTIONS (3)
  - ANAPHYLACTIC SHOCK [None]
  - RESPIRATORY ARREST [None]
  - VENTRICULAR ARRHYTHMIA [None]
